FAERS Safety Report 12086169 (Version 1)
Quarter: 2016Q1

REPORT INFORMATION
  Report Type: Spontaneous
  Country: JP (occurrence: JP)
  Receive Date: 20160217
  Receipt Date: 20160217
  Transmission Date: 20160526
  Serious: Yes (Death, Other)
  Sender: FDA-Public Use
  Company Number: JP-HQ SPECIALTY-JP-2016INT000045

PATIENT
  Age: 55 Year
  Sex: Male

DRUGS (5)
  1. CISPLATIN. [Suspect]
     Active Substance: CISPLATIN
     Indication: NASOPHARYNGEAL CANCER
     Dosage: 20 MG/M2, WEEKLY DOSES FOR A TOTAL OF SIX COURSES
  2. DOCETAXEL. [Suspect]
     Active Substance: DOCETAXEL
     Dosage: 60 MG/M2 X 1 DAY
  3. FLUOROURACIL. [Suspect]
     Active Substance: FLUOROURACIL
     Indication: NASOPHARYNGEAL CANCER
     Dosage: 600 MG/M2, X 5 DAYS
  4. CISPLATIN. [Suspect]
     Active Substance: CISPLATIN
     Dosage: 60 MG/M2 X 1 DAY
  5. DOCETAXEL. [Suspect]
     Active Substance: DOCETAXEL
     Indication: NASOPHARYNGEAL CANCER
     Dosage: 10 MG/M2, WEEKLY DOSES FOR A TOTAL OF SIX COURSES

REACTIONS (14)
  - Cytomegalovirus infection [Not Recovered/Not Resolved]
  - Stomatitis [Unknown]
  - Enteritis [Not Recovered/Not Resolved]
  - Gastrointestinal oedema [Recovering/Resolving]
  - Febrile neutropenia [Fatal]
  - Sepsis [Unknown]
  - Blood pressure decreased [Unknown]
  - Acute respiratory distress syndrome [Fatal]
  - Shock [Unknown]
  - Pneumonia staphylococcal [Fatal]
  - Platelet count decreased [Unknown]
  - Urine flow decreased [Unknown]
  - Diarrhoea [Not Recovered/Not Resolved]
  - Candida infection [Unknown]
